FAERS Safety Report 6609943-1 (Version None)
Quarter: 2010Q1

REPORT INFORMATION
  Report Type: 
  Country: None (occurrence: None)
  Receive Date: 20100302
  Receipt Date: 20100222
  Transmission Date: 20100710
  Serious: Yes (Hospitalization, Disabling, Other)
  Sender: FDA-Public Use
  Company Number: PHHO2009US13561

PATIENT
  Age: 65 Year
  Sex: Male
  Weight: 37.143 kg

DRUGS (20)
  1. ALDESLEUKIN C-ALDE+ [Suspect]
     Indication: CHRONIC GRAFT VERSUS HOST DISEASE
     Dosage: 3.0 X 10^6 IU/M2/DAY
     Route: 058
     Dates: start: 20091020, end: 20091026
  2. ALDESLEUKIN C-ALDE+ [Suspect]
     Dosage: NO TREATMENT
     Dates: start: 20091027, end: 20091029
  3. ALDESLEUKIN C-ALDE+ [Suspect]
     Dosage: 1.5 X 10^6 IU/M2/DAY
     Route: 058
     Dates: start: 20091030, end: 20091102
  4. ACYCLOVIR [Concomitant]
  5. ESOMEPRAZOLE [Concomitant]
  6. FOLIC ACID [Concomitant]
  7. FUROSEMIDE [Concomitant]
  8. GABAPENTIN [Concomitant]
     Dosage: UNK
  9. MAGNESIUM OXIDE [Concomitant]
  10. NYSTATIN [Concomitant]
  11. OXYCODONE [Concomitant]
     Dosage: UNK
  12. PREDNISONE TAB [Concomitant]
  13. SIROLIMUS [Concomitant]
  14. BACTRIM [Concomitant]
  15. FLUTICASONE [Concomitant]
  16. HEPARIN [Concomitant]
  17. NEXIUM [Concomitant]
  18. SALINE [Concomitant]
  19. MULTI-VITAMINS [Concomitant]
  20. VALTREX [Concomitant]

REACTIONS (8)
  - ARTHROPOD BITE [None]
  - CHILLS [None]
  - CHRONIC GRAFT VERSUS HOST DISEASE [None]
  - DRUG ADMINISTRATION ERROR [None]
  - FATIGUE [None]
  - INDURATION [None]
  - NIGHT SWEATS [None]
  - PYREXIA [None]
